FAERS Safety Report 20255205 (Version 1)
Quarter: 2021Q4

REPORT INFORMATION
  Report Type: Report from Study
  Country: ES (occurrence: ES)
  Receive Date: 20211230
  Receipt Date: 20211230
  Transmission Date: 20220303
  Serious: Yes (Death)
  Sender: FDA-Public Use
  Company Number: ES-ABBVIE-21K-144-4215611-00

PATIENT
  Age: 65 Year
  Sex: Male
  Weight: 105 kg

DRUGS (5)
  1. CARBIDOPA\LEVODOPA [Suspect]
     Active Substance: CARBIDOPA\LEVODOPA
     Indication: Parkinson^s disease
     Dosage: 24-HOUR PERFUSION AT 6.2 ML/H, NO MORNING DOSE OR EXTRA DOSES
     Route: 050
     Dates: start: 20211220
  2. CARBIDOPA\LEVODOPA [Suspect]
     Active Substance: CARBIDOPA\LEVODOPA
  3. QUETIAPINE [Concomitant]
     Active Substance: QUETIAPINE
     Indication: Product used for unknown indication
     Dosage: 100-0-200
     Route: 048
     Dates: end: 20211225
  4. RIVOTRIL [Concomitant]
     Active Substance: CLONAZEPAM
     Indication: Product used for unknown indication
     Dosage: 2 TABLETS AT NIGHT
     Route: 048
     Dates: end: 20211225
  5. DEPRAX [Concomitant]
     Indication: Product used for unknown indication
     Dosage: 100-0-200
     Route: 048
     Dates: end: 20211225

REACTIONS (2)
  - Feeling abnormal [Fatal]
  - Respiratory failure [Fatal]

NARRATIVE: CASE EVENT DATE: 20211225
